FAERS Safety Report 14060939 (Version 1)
Quarter: 2017Q4

REPORT INFORMATION
  Report Type: Spontaneous
  Country: GB (occurrence: GB)
  Receive Date: 20171007
  Receipt Date: 20171007
  Transmission Date: 20180321
  Serious: Yes (Life-Threatening, Hospitalization)
  Sender: FDA-Public Use
  Company Number: GB-AUROBINDO-AUR-APL-2017-41480

PATIENT
  Age: 26 Year
  Sex: Female
  Weight: 68 kg

DRUGS (5)
  1. ABACAVIR + LAMIVUDINE 600/300MG [Suspect]
     Active Substance: ABACAVIR\LAMIVUDINE
     Indication: ASYMPTOMATIC HIV INFECTION
     Dosage: 600/300
     Route: 002
     Dates: start: 20170801, end: 20170802
  2. PHENOXIMETHYLPENICILLINUM [Concomitant]
     Active Substance: PENICILLIN V
     Indication: RASH
     Dates: start: 20170605, end: 20170619
  3. EFAVIRENZ. [Concomitant]
     Active Substance: EFAVIRENZ
     Indication: LOWER RESPIRATORY TRACT INFECTION
     Dates: start: 20170629, end: 20170707
  4. AMOXICILLIN. [Concomitant]
     Active Substance: AMOXICILLIN
     Indication: LOWER RESPIRATORY TRACT INFECTION
     Dates: start: 20170523, end: 20170530
  5. RILPIVIRINE [Concomitant]
     Active Substance: RILPIVIRINE
     Indication: ASYMPTOMATIC HIV INFECTION
     Dates: start: 20170801, end: 20170802

REACTIONS (9)
  - Hypersensitivity [Unknown]
  - Flushing [Recovered/Resolved]
  - Vomiting [Recovered/Resolved]
  - Hypotension [Recovered/Resolved]
  - Ocular hyperaemia [Recovered/Resolved]
  - Feeling hot [Recovered/Resolved]
  - Acute kidney injury [Unknown]
  - Liver function test increased [Unknown]
  - Oral discomfort [Recovered/Resolved]

NARRATIVE: CASE EVENT DATE: 20170801
